FAERS Safety Report 5700315-0 (Version None)
Quarter: 2008Q2

REPORT INFORMATION
  Report Type: 
  Country: None (occurrence: None)
  Receive Date: 20080410
  Receipt Date: 20080403
  Transmission Date: 20081010
  Serious: Yes (Other)
  Sender: FDA-Public Use
  Company Number: B0511787A

PATIENT
  Age: 86 Year
  Sex: Female

DRUGS (1)
  1. ARIXTRA [Suspect]
     Indication: KNEE ARTHROPLASTY
     Dosage: 1.5MG PER DAY
     Route: 058
     Dates: start: 20080223, end: 20080228

REACTIONS (2)
  - DYSARTHRIA [None]
  - PARALYSIS [None]
